FAERS Safety Report 7981172-9 (Version None)
Quarter: 2011Q4

REPORT INFORMATION
  Report Type: 
  Country: None (occurrence: None)
  Receive Date: 20111129
  Receipt Date: 20110630
  Transmission Date: 20120403
  Serious: Yes (Other)
  Sender: FDA-Public Use
  Company Number: PHHY2011US58725

PATIENT
  Sex: Female

DRUGS (2)
  1. THYROID PREPARATIONS (NO INGREDIENTS/SUBSTANCES) [Concomitant]
  2. LAMISIL [Suspect]
     Dosage: 250 MG, QD, ORAL
     Route: 048

REACTIONS (5)
  - AGEUSIA [None]
  - DYSGEUSIA [None]
  - HYPOPHAGIA [None]
  - WEIGHT DECREASED [None]
  - CHOKING SENSATION [None]
